FAERS Safety Report 23432446 (Version 1)
Quarter: 2024Q1

REPORT INFORMATION
  Report Type: Spontaneous
  Country: US (occurrence: None)
  Receive Date: 20240122
  Receipt Date: 20240122
  Transmission Date: 20240409
  Serious: Yes (Death)
  Sender: FDA-Public Use
  Company Number: None

PATIENT
  Age: 53 Year
  Sex: Female

DRUGS (1)
  1. VERZENIO [Suspect]
     Active Substance: ABEMACICLIB
     Indication: Breast cancer female
     Route: 048
     Dates: start: 202203

REACTIONS (4)
  - Pneumonia viral [None]
  - Lung disorder [None]
  - Cardiac disorder [None]
  - Disease complication [None]

NARRATIVE: CASE EVENT DATE: 20240117
